FAERS Safety Report 17133240 (Version 2)
Quarter: 2019Q4

REPORT INFORMATION
  Report Type: Report from Study
  Country: None (occurrence: US)
  Receive Date: 20191210
  Receipt Date: 20191218
  Transmission Date: 20200122
  Serious: Yes (Hospitalization)
  Sender: FDA-Public Use
  Company Number: US-ABBVIE-19K-163-3176430-00

PATIENT
  Age: 65 Year
  Sex: Male

DRUGS (3)
  1. VENCLEXTA [Suspect]
     Active Substance: VENETOCLAX
     Indication: CHRONIC LYMPHOCYTIC LEUKAEMIA
     Route: 048
     Dates: start: 20191120, end: 2019
  2. ELIQUIS [Concomitant]
     Active Substance: APIXABAN
     Indication: PRODUCT USED FOR UNKNOWN INDICATION
  3. VENCLEXTA [Suspect]
     Active Substance: VENETOCLAX
     Route: 048
     Dates: start: 2019

REACTIONS (10)
  - Fatigue [Not Recovered/Not Resolved]
  - Hypotension [Unknown]
  - Unevaluable event [Not Recovered/Not Resolved]
  - Platelet count increased [Unknown]
  - Infection [Unknown]
  - Blood count abnormal [Unknown]
  - Pyrexia [Not Recovered/Not Resolved]
  - Heart rate decreased [Unknown]
  - Asthenia [Recovering/Resolving]
  - Chills [Not Recovered/Not Resolved]

NARRATIVE: CASE EVENT DATE: 2019
